FAERS Safety Report 22374693 (Version 4)
Quarter: 2023Q2

REPORT INFORMATION
  Report Type: Spontaneous
  Country: US (occurrence: US)
  Receive Date: 20230526
  Receipt Date: 20230527
  Transmission Date: 20230721
  Serious: No
  Sender: FDA-Public Use
  Company Number: US-Dermavant-000484

PATIENT
  Age: 32 Year
  Sex: Female

DRUGS (1)
  1. TAPINAROF [Suspect]
     Active Substance: TAPINAROF
     Indication: Psoriasis
     Dosage: AREA OF APPLICATION: RIGHT AND LEFT ARMS
     Route: 061
     Dates: start: 2023, end: 20230221

REACTIONS (4)
  - Dermatitis contact [Unknown]
  - Erythema [Unknown]
  - Swelling [Unknown]
  - Blister [Unknown]

NARRATIVE: CASE EVENT DATE: 20230101
